FAERS Safety Report 5759563-6 (Version None)
Quarter: 2008Q2

REPORT INFORMATION
  Report Type: 
  Country: None (occurrence: None)
  Receive Date: 20080605
  Receipt Date: 20080528
  Transmission Date: 20081010
  Serious: Yes (Other)
  Sender: FDA-Public Use
  Company Number: US-BAYER-200824265NA

PATIENT

DRUGS (1)
  1. LEUKINE [Suspect]
     Indication: DRUG USE FOR UNKNOWN INDICATION
     Dates: start: 20080101

REACTIONS (3)
  - DYSPNOEA [None]
  - INJECTION SITE REACTION [None]
  - RASH GENERALISED [None]
